FAERS Safety Report 5644348-1 (Version None)
Quarter: 2008Q1

REPORT INFORMATION
  Report Type: 
  Country: None (occurrence: None)
  Receive Date: 20080229
  Receipt Date: 20080122
  Transmission Date: 20080703
  Serious: Yes (Hospitalization, Other)
  Sender: FDA-Public Use
  Company Number: GB-NOVOPROD-271335

PATIENT
  Sex: Male

DRUGS (13)
  1. LEVEMIR [Suspect]
     Indication: DIABETES MELLITUS
     Dosage: 60 IU, QD
     Route: 058
     Dates: start: 20041111
  2. TAZOCIN [Suspect]
     Indication: DRUG USE FOR UNKNOWN INDICATION
     Route: 042
     Dates: start: 20071004, end: 20071004
  3. ASPIRIN [Concomitant]
     Dosage: 75 MG, QD
     Route: 048
     Dates: start: 20070101
  4. SIMVASTATIN [Concomitant]
     Dosage: 10 MG, QD
     Route: 048
     Dates: start: 20070101
  5. NIFEDIPINE [Concomitant]
     Dosage: 30 MG, QD
     Route: 048
     Dates: start: 20041118
  6. DOXAZOSIN MESYLATE [Concomitant]
     Dosage: 4 MG, QD
     Route: 048
     Dates: start: 20051115
  7. OMEPRAZOLE [Concomitant]
     Dosage: 20 MG, QD
     Route: 048
     Dates: start: 19970821
  8. AZATHIOPRINE [Concomitant]
     Dosage: 50 MG, QD
     Route: 048
     Dates: start: 19950101
  9. PREDNISOLONE [Concomitant]
     Dosage: 2.5 MG, QD
     Route: 048
     Dates: start: 20070101
  10. TACROLIMUS [Concomitant]
     Dosage: .5 MG, QD
     Route: 048
  11. FENTANYL [Concomitant]
     Dates: start: 20071004
  12. PROPOFOL [Concomitant]
  13. VECURONIUM BROMIDE [Concomitant]

REACTIONS (2)
  - HYPOTENSION [None]
  - RASH ERYTHEMATOUS [None]
